FAERS Safety Report 9120876 (Version 1)
Quarter: 2013Q1

REPORT INFORMATION
  Report Type: Spontaneous
  Country: US (occurrence: US)
  Receive Date: 20130226
  Receipt Date: 20130226
  Transmission Date: 20140127
  Serious: Yes (Hospitalization)
  Sender: FDA-Public Use
  Company Number: US-GLAXOSMITHKLINE-A1005096A

PATIENT
  Age: 31 Year
  Sex: Male

DRUGS (1)
  1. ARIXTRA [Suspect]
     Indication: THROMBOSIS MESENTERIC VESSEL
     Dosage: 7.5MG PER DAY
     Route: 058
     Dates: start: 20121205, end: 20121211

REACTIONS (1)
  - Pyrexia [Not Recovered/Not Resolved]
